FAERS Safety Report 8465843-6 (Version None)
Quarter: 2012Q2

REPORT INFORMATION
  Report Type: 
  Country: None (occurrence: None)
  Receive Date: 20120619
  Receipt Date: 20120619
  Transmission Date: 20120825
  Serious: No
  Sender: FDA-Public Use
  Company Number: 2012SP032200

PATIENT
  Sex: Female

DRUGS (1)
  1. CEDAX [Suspect]
     Indication: PRODUCT USED FOR UNKNOWN INDICATION
     Dosage: POW_POSUS

REACTIONS (1)
  - INCORRECT STORAGE OF DRUG [None]
